FAERS Safety Report 9032346 (Version 4)
Quarter: 2013Q1

REPORT INFORMATION
  Report Type: Spontaneous
  Country: DE (occurrence: DE)
  Receive Date: 20130125
  Receipt Date: 20130304
  Transmission Date: 20140127
  Serious: Yes (Hospitalization)
  Sender: FDA-Public Use
  Company Number: DE-EISAI INC-E2007-01024-SPO-DE

PATIENT
  Age: 17 Year
  Sex: Female
  Weight: 42 kg

DRUGS (6)
  1. FYCOMPA [Suspect]
     Indication: EPILEPSY
     Dosage: UNKNOWN
     Route: 048
     Dates: start: 2012, end: 20121209
  2. FYCOMPA [Suspect]
     Route: 048
     Dates: start: 20121210, end: 20130105
  3. FYCOMPA [Suspect]
     Route: 048
     Dates: start: 20130106
  4. LEVETIRACETAM [Concomitant]
     Indication: EPILEPSY
     Dosage: 3000 MG UNKNOWN
     Route: 048
     Dates: start: 2010
  5. APYDAN EXTENT [Concomitant]
     Indication: EPILEPSY
     Dosage: 1200 MG UNKNOWN
     Route: 048
     Dates: start: 2010
  6. MARCUMAR [Concomitant]
     Indication: EPILEPSY
     Dosage: 3 MG UNKNOWN
     Route: 048
     Dates: start: 20121115

REACTIONS (8)
  - Hallucination, visual [Recovered/Resolved]
  - Agitation [Recovered/Resolved]
  - Dizziness [Recovered/Resolved]
  - Ataxia [Recovered/Resolved]
  - Somnolence [Recovered/Resolved]
  - Inflammation [Unknown]
  - Hallucination, auditory [Unknown]
  - Panic attack [Unknown]
